FAERS Safety Report 25633590 (Version 1)
Quarter: 2025Q3

REPORT INFORMATION
  Report Type: Report from Study
  Country: CO (occurrence: CO)
  Receive Date: 20250801
  Receipt Date: 20250801
  Transmission Date: 20251021
  Serious: Yes (Hospitalization)
  Sender: ABBVIE
  Company Number: CO-JNJFOC-20250734342

PATIENT
  Age: 80 Year
  Sex: Male
  Weight: 64 kg

DRUGS (1)
  1. IMBRUVICA [Suspect]
     Active Substance: IBRUTINIB
     Indication: Chronic lymphocytic leukaemia
     Route: 048
     Dates: start: 20170113

REACTIONS (2)
  - Pneumonia [Unknown]
  - Lung disorder [Unknown]

NARRATIVE: CASE EVENT DATE: 20250626
